FAERS Safety Report 8071286-X (Version None)
Quarter: 2012Q1

REPORT INFORMATION
  Report Type: 
  Country: None (occurrence: None)
  Receive Date: 20120125
  Receipt Date: 20120113
  Transmission Date: 20120608
  Serious: Yes (Hospitalization)
  Sender: FDA-Public Use
  Company Number: IT-BRISTOL-MYERS SQUIBB COMPANY-16351215

PATIENT
  Age: 64 Year
  Sex: Male

DRUGS (5)
  1. METFORAL [Concomitant]
     Route: 048
     Dates: start: 20070301, end: 20111209
  2. ONGLYZA [Suspect]
     Indication: TYPE 2 DIABETES MELLITUS
     Route: 048
     Dates: start: 20111005, end: 20111030
  3. ACTOS [Concomitant]
     Dosage: TABS
     Route: 048
  4. CRESTOR [Concomitant]
     Route: 048
     Dates: start: 20101014, end: 20111209
  5. RAMIPRIL [Suspect]
     Dosage: 1DF=2.5MG+12.5MG TABS.2.5 MG
     Route: 048
     Dates: start: 20070301, end: 20111209

REACTIONS (2)
  - ANGIOEDEMA [None]
  - MEDIASTINAL DISORDER [None]
